FAERS Safety Report 9654725 (Version 1)
Quarter: 2013Q4

REPORT INFORMATION
  Report Type: Spontaneous
  Country: IL (occurrence: None)
  Receive Date: 20131016
  Receipt Date: 20131016
  Transmission Date: 20140711
  Serious: Yes (Death)
  Sender: FDA-Public Use
  Company Number: 2013038320

PATIENT
  Age: 71 Year
  Sex: Male

DRUGS (1)
  1. INTRAVENOUS IMMUNOGLOBULIN [Suspect]

REACTIONS (5)
  - Drug ineffective [None]
  - Off label use [None]
  - Axonal neuropathy [None]
  - Autonomic nervous system imbalance [None]
  - Rhythm idioventricular [None]
